FAERS Safety Report 17163678 (Version 1)
Quarter: 2019Q4

REPORT INFORMATION
  Report Type: Spontaneous
  Country: US (occurrence: US)
  Receive Date: 20191217
  Receipt Date: 20191217
  Transmission Date: 20200122
  Serious: No
  Sender: FDA-Public Use
  Company Number: US-009507513-1912USA006269

PATIENT
  Age: 41 Year
  Sex: Female
  Weight: 136.05 kg

DRUGS (4)
  1. LISINOPRIL. [Concomitant]
     Active Substance: LISINOPRIL
  2. FAMOTIDINE. [Concomitant]
     Active Substance: FAMOTIDINE
  3. NAPROXEN. [Concomitant]
     Active Substance: NAPROXEN
  4. NEXPLANON [Suspect]
     Active Substance: ETONOGESTREL
     Indication: MENSTRUATION IRREGULAR
     Dosage: IMPLANT, 3 YEARS
     Route: 059
     Dates: start: 20191030

REACTIONS (4)
  - Dizziness [Not Recovered/Not Resolved]
  - Abdominal discomfort [Not Recovered/Not Resolved]
  - Product use in unapproved indication [Unknown]
  - Headache [Not Recovered/Not Resolved]

NARRATIVE: CASE EVENT DATE: 20191030
